FAERS Safety Report 18691327 (Version 1)
Quarter: 2021Q1

REPORT INFORMATION
  Report Type: Spontaneous
  Country: US (occurrence: US)
  Receive Date: 20210101
  Receipt Date: 20210101
  Transmission Date: 20210419
  Serious: No
  Sender: FDA-Public Use
  Company Number: US-TAKEDA-2020TUS060947

PATIENT
  Sex: Female
  Weight: 74.38 kg

DRUGS (11)
  1. GARLIC + PARSLEY [ALLIUM SATIVUM;CHLOROPHYLL;PETROSELINUM CRISPUM] [Concomitant]
     Dosage: UNK
     Route: 065
  2. VITAMIN D2 + CALCIUM [CALCIUM GLUCONATE;CALCIUM PHOSPHATE;ERGOCALCIFER [Concomitant]
     Route: 065
  3. FOSAMAX [Concomitant]
     Active Substance: ALENDRONATE SODIUM
     Dosage: UNK
     Route: 065
  4. BACTRIM [Concomitant]
     Active Substance: SULFAMETHOXAZOLE\TRIMETHOPRIM
     Dosage: UNK
     Route: 065
  5. RITUXAN [Concomitant]
     Active Substance: RITUXIMAB
     Dosage: UNK
     Route: 065
  6. TURMERIC MERIVA [Concomitant]
     Active Substance: HERBALS\TURMERIC
     Dosage: UNK
     Route: 065
  7. GINGER CITRONELLA [Concomitant]
     Dosage: UNK
     Route: 065
  8. GAMMAGARD [Suspect]
     Active Substance: HUMAN IMMUNOGLOBULIN G
     Indication: DERMATOMYOSITIS
     Dosage: 30 GRAM
     Route: 042
     Dates: start: 20201117
  9. ACYCLOVIR ABBOTT VIAL [Concomitant]
     Dosage: UNK
     Route: 065
  10. BIOTIN [Concomitant]
     Active Substance: BIOTIN
     Dosage: UNK
     Route: 065
  11. FOLIC ACID ALMUS [Concomitant]
     Active Substance: FOLIC ACID
     Dosage: UNK
     Route: 065

REACTIONS (2)
  - Headache [Unknown]
  - Product use in unapproved indication [Unknown]
